FAERS Safety Report 15375980 (Version 3)
Quarter: 2018Q3

REPORT INFORMATION
  Report Type: Report from Study
  Country: US (occurrence: US)
  Receive Date: 20180912
  Receipt Date: 20180927
  Transmission Date: 20181010
  Serious: Yes (Hospitalization)
  Sender: FDA-Public Use
  Company Number: US-GILEAD-2018-0361670

PATIENT
  Age: 76 Year
  Sex: Male

DRUGS (4)
  1. IDELALISIB [Suspect]
     Active Substance: IDELALISIB
     Indication: B-CELL LYMPHOMA
     Dosage: 150 MG, BID
     Route: 048
     Dates: start: 20180124, end: 20180903
  2. RITUXAN [Concomitant]
     Active Substance: RITUXIMAB
     Dosage: UNKNOWN
  3. BROMOCRIPTINE [Interacting]
     Active Substance: BROMOCRIPTINE
     Indication: PRODUCT USED FOR UNKNOWN INDICATION
     Route: 065
  4. IDELALISIB [Interacting]
     Active Substance: IDELALISIB
     Indication: LEUKAEMIA
     Dosage: 150 MG, BID
     Route: 048
     Dates: start: 20180906

REACTIONS (4)
  - Catheter site pain [Not Recovered/Not Resolved]
  - Catheter site erythema [Recovering/Resolving]
  - Drug interaction [Unknown]
  - Central venous catheter removal [Recovering/Resolving]

NARRATIVE: CASE EVENT DATE: 20180902
